FAERS Safety Report 15862880 (Version 1)
Quarter: 2019Q1

REPORT INFORMATION
  Report Type: Spontaneous
  Country: US (occurrence: US)
  Receive Date: 20190124
  Receipt Date: 20190124
  Transmission Date: 20190417
  Serious: No
  Sender: FDA-Public Use
  Company Number: US-TEVA-2019-US-996229

PATIENT
  Sex: Male

DRUGS (1)
  1. SILDENAFIL TEVA [Suspect]
     Active Substance: SILDENAFIL
     Indication: ERECTILE DYSFUNCTION
     Dates: start: 20180804

REACTIONS (2)
  - Wrong technique in product usage process [Unknown]
  - Drug effect variable [Unknown]
